FAERS Safety Report 5334561-5 (Version None)
Quarter: 2007Q2

REPORT INFORMATION
  Report Type: 
  Country: None (occurrence: None)
  Receive Date: 20070522
  Receipt Date: 20070508
  Transmission Date: 20071010
  Serious: Yes (Death, Hospitalization)
  Sender: FDA-Public Use
  Company Number: MEDI-0005792

PATIENT
  Age: 19 Month
  Sex: Male

DRUGS (14)
  1. SYNAGIS [Suspect]
     Indication: ANTIVIRAL PROPHYLAXIS
     Dosage: SEE IMAGE
     Dates: start: 20061027, end: 20061027
  2. SYNAGIS [Suspect]
     Indication: ANTIVIRAL PROPHYLAXIS
     Dosage: SEE IMAGE
     Dates: start: 20061130
  3. SYNAGIS [Suspect]
     Indication: ANTIVIRAL PROPHYLAXIS
     Dosage: SEE IMAGE
     Dates: start: 20061228
  4. SYNAGIS [Suspect]
     Indication: ANTIVIRAL PROPHYLAXIS
     Dosage: SEE IMAGE
     Dates: start: 20070125
  5. SULFAMETHOXAZOLE/TRIMETHOPRIME [Concomitant]
  6. AMBROXOL HYDROCHLORIDE (AMBROXOL HYDROCHLORIDE) [Concomitant]
  7. L-CARBOCISTEINE [Concomitant]
  8. FUROSEMIDE [Concomitant]
  9. SPIRONOLACTONE [Concomitant]
  10. TRICHLORMETHIAZIDE [Concomitant]
  11. DIGOXIN [Concomitant]
  12. THEOPHYLLINE [Concomitant]
  13. PRANLUKAST HYDRATE [Concomitant]
  14. TULOBUTEROL (TULOBUTEROL) [Concomitant]

REACTIONS (2)
  - PERITONEAL DIALYSIS [None]
  - SHOCK [None]
